FAERS Safety Report 13665224 (Version 1)
Quarter: 2017Q2

REPORT INFORMATION
  Report Type: Spontaneous
  Country: US (occurrence: US)
  Receive Date: 20170619
  Receipt Date: 20170619
  Transmission Date: 20170830
  Serious: Yes (Hospitalization, Other)
  Sender: FDA-Public Use
  Company Number: US-PFIZER INC-2017232256

PATIENT
  Age: 84 Year
  Sex: Male

DRUGS (3)
  1. INLYTA [Suspect]
     Active Substance: AXITINIB
     Dosage: 2.5 MG, 2X/DAY (1/2 AM, 1/2 PM)
     Dates: start: 20170523, end: 20170603
  2. INLYTA [Suspect]
     Active Substance: AXITINIB
     Indication: RENAL CELL CARCINOMA
     Dosage: 5 MG, 2X/DAY
     Dates: start: 20170203, end: 20170221
  3. INLYTA [Suspect]
     Active Substance: AXITINIB
     Dosage: 2.5 MG, 1X/DAY (1/2 PM ONLY)
     Dates: start: 20170604

REACTIONS (4)
  - Cerebral haemorrhage [Not Recovered/Not Resolved]
  - Confusional state [Unknown]
  - Dehydration [Unknown]
  - Fatigue [Not Recovered/Not Resolved]

NARRATIVE: CASE EVENT DATE: 20170213
